FAERS Safety Report 9231227 (Version 2)
Quarter: 2013Q2

REPORT INFORMATION
  Report Type: Spontaneous
  Country: SE (occurrence: SE)
  Receive Date: 20130415
  Receipt Date: 20130419
  Transmission Date: 20140414
  Serious: Yes (Hospitalization, Other)
  Sender: FDA-Public Use
  Company Number: SE-ASTRAZENECA-2013SE24428

PATIENT
  Age: 84 Year
  Sex: Female

DRUGS (3)
  1. TENORMIN [Suspect]
     Route: 065
     Dates: end: 2013
  2. ARICEPT [Suspect]
     Indication: DEMENTIA
     Route: 065
     Dates: end: 2013
  3. SALURES [Concomitant]
     Indication: BLOOD PRESSURE ABNORMAL
     Dates: end: 2013

REACTIONS (4)
  - Depressed level of consciousness [Unknown]
  - Bradycardia [Unknown]
  - Atrioventricular block [Unknown]
  - Hypotension [Unknown]
